FAERS Safety Report 12872919 (Version 2)
Quarter: 2016Q4

REPORT INFORMATION
  Report Type: Report from Study
  Country: CA (occurrence: CA)
  Receive Date: 20161021
  Receipt Date: 20161209
  Transmission Date: 20170207
  Serious: Yes (Other)
  Sender: FDA-Public Use
  Company Number: CA-REGENERON PHARMACEUTICALS, INC.-2016-22959

PATIENT

DRUGS (2)
  1. EYLEA [Suspect]
     Active Substance: AFLIBERCEPT
     Indication: DETACHMENT OF RETINAL PIGMENT EPITHELIUM
     Dosage: AFLIBERCEPT INJECTION ON A MONTHLY BASIS FOR 3 MONTHS
     Route: 031
  2. EYLEA [Suspect]
     Active Substance: AFLIBERCEPT
     Indication: NEOVASCULAR AGE-RELATED MACULAR DEGENERATION
     Dosage: AFLIBERCEPT INJECTION ON A BI-MONTHLY BASIS FOR 9 MONTHS
     Route: 031

REACTIONS (1)
  - Macular fibrosis [Unknown]
